FAERS Safety Report 9395958 (Version 1)
Quarter: 2013Q3

REPORT INFORMATION
  Report Type: Spontaneous
  Country: US (occurrence: US)
  Receive Date: 20130711
  Receipt Date: 20130711
  Transmission Date: 20140515
  Serious: No
  Sender: FDA-Public Use
  Company Number: US-PFIZER INC-2013202651

PATIENT
  Age: 70 Year
  Sex: Female

DRUGS (12)
  1. XELJANZ [Suspect]
     Indication: RHEUMATOID ARTHRITIS
     Dosage: 5 MG, 2X/DAY
     Route: 048
     Dates: end: 20130707
  2. FOLIC ACID [Concomitant]
     Dosage: UNK
  3. SYNTHROID [Concomitant]
     Dosage: UNK
  4. TRAMADOL [Concomitant]
     Dosage: UNK
  5. METHOTREXATE [Concomitant]
     Dosage: UNK
  6. AMLODIPINE [Concomitant]
     Dosage: UNK
  7. SERTRALINE [Concomitant]
     Dosage: UNK
  8. FUROSEMIDE [Concomitant]
     Dosage: UNK
  9. VITAMIN D [Concomitant]
     Dosage: UNK
  10. CALCIUM [Concomitant]
     Dosage: UNK
  11. LUTEIN ZEAXANTHIN [Concomitant]
     Dosage: UNK
  12. OMEGA 3 [Concomitant]
     Dosage: UNK

REACTIONS (3)
  - Faeces pale [Unknown]
  - Diarrhoea [Recovering/Resolving]
  - Abdominal pain upper [Unknown]
